FAERS Safety Report 5652605-8 (Version None)
Quarter: 2008Q1

REPORT INFORMATION
  Report Type: 
  Country: None (occurrence: None)
  Receive Date: 20080131
  Receipt Date: 20071016
  Transmission Date: 20080703
  Serious: No
  Sender: FDA-Public Use
  Company Number: US200710004205

PATIENT
  Age: 75 Year
  Sex: Female
  Weight: 122.9 kg

DRUGS (4)
  1. BYETTA [Suspect]
     Indication: TYPE 2 DIABETES MELLITUS
     Dosage: SEE IMAGE
     Route: 058
     Dates: start: 20051001, end: 20051101
  2. BYETTA [Suspect]
     Indication: TYPE 2 DIABETES MELLITUS
     Dosage: SEE IMAGE
     Route: 058
     Dates: start: 20070901
  3. AMARYL [Concomitant]
  4. AVANDIA /SCH/ (ROSIGLITAZONE MALEATE) [Concomitant]

REACTIONS (4)
  - BLOOD CREATININE INCREASED [None]
  - DRUG INEFFECTIVE [None]
  - NAUSEA [None]
  - WEIGHT DECREASED [None]
